FAERS Safety Report 4444205-2 (Version None)
Quarter: 2004Q3

REPORT INFORMATION
  Report Type: 
  Country: None (occurrence: None)
  Receive Date: 20040902
  Receipt Date: 20040812
  Transmission Date: 20050211
  Serious: Yes (Hospitalization)
  Sender: FDA-Public Use
  Company Number: USA040874284

PATIENT
  Age: 72 Year
  Sex: Male
  Weight: 58 kg

DRUGS (12)
  1. ALIMTA [Suspect]
     Indication: PLEURAL MESOTHELIOMA MALIGNANT
     Dosage: 500 MG/M2 OTHER
     Dates: start: 20040623
  2. CISPLATIN [Concomitant]
  3. VITAMIN B-12 [Concomitant]
  4. FOLIC ACID [Concomitant]
  5. CORTICOSTEROID [Concomitant]
  6. ALOXI [Concomitant]
  7. LASIX [Concomitant]
  8. VERAPAMIL [Concomitant]
  9. OXYCONTIN [Concomitant]
  10. MIRALAX [Concomitant]
  11. PHENERGAN (PROMETAHZINE HYDROCHLORIDE) [Concomitant]
  12. MEGACE [Concomitant]

REACTIONS (1)
  - PULMONARY EMBOLISM [None]
